FAERS Safety Report 12853279 (Version 2)
Quarter: 2016Q4

REPORT INFORMATION
  Report Type: Spontaneous
  Country: FR (occurrence: FR)
  Receive Date: 20161017
  Receipt Date: 20161027
  Transmission Date: 20170207
  Serious: Yes (Hospitalization)
  Sender: FDA-Public Use
  Company Number: FR-PFIZER INC-2016470688

PATIENT
  Age: 57 Year
  Sex: Female

DRUGS (7)
  1. ALPRESS [Suspect]
     Active Substance: PRAZOSIN
     Dosage: UNK
     Route: 048
     Dates: start: 20160217, end: 20160314
  2. POTASSIUM [Concomitant]
     Active Substance: POTASSIUM
     Dosage: 600 MG, 1X/DAY
  3. HYPERIUM [Concomitant]
     Active Substance: RILMENIDINE PHOSPHATE
     Dosage: 1 MG, 2X/DAY
     Dates: start: 20160217
  4. BI TILDIEM [Suspect]
     Active Substance: DILTIAZEM HYDROCHLORIDE
     Dosage: UNK
     Route: 048
     Dates: start: 20160217, end: 20160314
  5. GLUCOPHAGE [Concomitant]
     Active Substance: METFORMIN HYDROCHLORIDE
     Dosage: 500 MG, 3X/DAY
  6. AMAREL [Concomitant]
     Active Substance: GLIMEPIRIDE
     Dosage: 4 MG, 1X/DAY
  7. ONGLYZA [Concomitant]
     Active Substance: SAXAGLIPTIN HYDROCHLORIDE
     Dosage: 5 MG, 1X/DAY

REACTIONS (4)
  - Oedema peripheral [Recovered/Resolved]
  - Toxic skin eruption [Recovered/Resolved]
  - Constipation [Unknown]
  - Pyrexia [Recovered/Resolved]

NARRATIVE: CASE EVENT DATE: 201603
